FAERS Safety Report 5486486-2 (Version None)
Quarter: 2007Q4

REPORT INFORMATION
  Report Type: 
  Country: None (occurrence: None)
  Receive Date: 20071016
  Receipt Date: 20071009
  Transmission Date: 20080405
  Serious: Yes (Disabling)
  Sender: FDA-Public Use
  Company Number: B0491014A

PATIENT
  Sex: Female

DRUGS (6)
  1. QVAR 40 [Suspect]
     Indication: COUGH
     Dosage: 100UG FOUR TIMES PER DAY
     Route: 055
     Dates: start: 20051006, end: 20060424
  2. SALAMOL [Suspect]
     Indication: COUGH
     Dosage: 100UG EIGHT TIMES PER DAY
     Route: 055
     Dates: start: 20050927, end: 20060222
  3. ACETYLCYSTEINE [Concomitant]
     Dosage: 200MG TWICE PER DAY
     Route: 048
     Dates: start: 20060209, end: 20060226
  4. FERROUS SULFATE TAB [Concomitant]
     Dosage: 200MG THREE TIMES PER DAY
     Route: 048
     Dates: start: 20050101, end: 20060222
  5. PREDNISOLONE [Concomitant]
     Indication: COUGH
     Route: 048
     Dates: start: 20051018, end: 20051028
  6. UNKNOWN MEDICATION [Concomitant]
     Route: 055
     Dates: start: 20060202, end: 20060226

REACTIONS (10)
  - ABASIA [None]
  - BURNOUT SYNDROME [None]
  - DYSPNOEA [None]
  - FEAR [None]
  - FEELING COLD [None]
  - HYPERVENTILATION [None]
  - PARAESTHESIA [None]
  - SENSATION OF HEAVINESS [None]
  - SWELLING [None]
  - VISUAL DISTURBANCE [None]
